FAERS Safety Report 11587515 (Version 2)
Quarter: 2015Q4

REPORT INFORMATION
  Report Type: Report from Study
  Country: BR (occurrence: BR)
  Receive Date: 20151001
  Receipt Date: 20151021
  Transmission Date: 20160304
  Serious: Yes (Other)
  Sender: FDA-Public Use
  Company Number: BR-EMD SERONO-8045007

PATIENT
  Sex: Female
  Weight: 73 kg

DRUGS (1)
  1. REBIF [Suspect]
     Active Substance: INTERFERON BETA-1A
     Indication: MULTIPLE SCLEROSIS
     Dosage: (FULL SYRINGE)
     Route: 058
     Dates: start: 20020913, end: 201505

REACTIONS (3)
  - Headache [Recovered/Resolved]
  - Gamma-glutamyltransferase increased [Unknown]
  - Balance disorder [Unknown]
